FAERS Safety Report 9397973 (Version 3)
Quarter: 2014Q1

REPORT INFORMATION
  Report Type: Report from Study
  Country: IT (occurrence: IT)
  Receive Date: 20130712
  Receipt Date: 20140204
  Transmission Date: 20141002
  Serious: Yes (Death)
  Sender: FDA-Public Use
  Company Number: PHHO2013IT009089

PATIENT
  Sex: 0

DRUGS (4)
  1. AFINITOR [Suspect]
     Indication: BREAST CANCER METASTATIC
     Dosage: 10 MG, QD
     Route: 048
     Dates: start: 20130508, end: 20130614
  2. EXEMESTANE [Suspect]
     Indication: BREAST CANCER METASTATIC
     Dosage: 25 MG, QD
     Route: 048
     Dates: start: 20130508, end: 20130709
  3. CALCIUM ^SANDOZ^ [Concomitant]
     Indication: HYPOCALCAEMIA
     Dosage: 1000 MG, QD
     Route: 048
     Dates: start: 20130606
  4. AROVIT [Concomitant]
     Indication: HYPOVITAMINOSIS
     Dosage: 15 GTT, UNK
     Route: 048
     Dates: start: 20130606

REACTIONS (1)
  - Malignant neoplasm progression [Fatal]
